FAERS Safety Report 6541288-0 (Version None)
Quarter: 2010Q1

REPORT INFORMATION
  Report Type: 
  Country: None (occurrence: None)
  Receive Date: 20100118
  Receipt Date: 20100111
  Transmission Date: 20100710
  Serious: Yes (Other)
  Sender: FDA-Public Use
  Company Number: US-MYLANLABS-2010S1000397

PATIENT
  Age: 25 Year
  Sex: Female

DRUGS (4)
  1. AMNESTEEM [Suspect]
     Route: 048
     Dates: start: 20090724, end: 20090806
  2. AMNESTEEM [Suspect]
     Route: 048
     Dates: start: 20090901
  3. AMNESTEEM [Suspect]
     Route: 048
     Dates: end: 20091217
  4. ORAL CONTRACEPTIVE NOS [Concomitant]

REACTIONS (1)
  - DRUG EXPOSURE DURING PREGNANCY [None]
